FAERS Safety Report 19809055 (Version 1)
Quarter: 2021Q3

REPORT INFORMATION
  Report Type: Spontaneous
  Country: GB (occurrence: GB)
  Receive Date: 20210908
  Receipt Date: 20210908
  Transmission Date: 20211014
  Serious: Yes (Other)
  Sender: FDA-Public Use
  Company Number: GB-VERTEX PHARMACEUTICALS-2021-013515

PATIENT
  Age: 28 Year
  Sex: Male
  Weight: 63 kg

DRUGS (13)
  1. SYMKEVI [Suspect]
     Active Substance: IVACAFTOR\TEZACAFTOR
     Indication: CYSTIC FIBROSIS
     Dosage: 1 DOSAGE FORM, QD, EVERY MORNING
     Route: 048
     Dates: start: 20200407, end: 20210205
  2. KALYDECO [Suspect]
     Active Substance: IVACAFTOR
     Indication: CYSTIC FIBROSIS
     Dosage: 150 MG, QD EVERY NIGHT
     Route: 048
     Dates: start: 20200407, end: 20210205
  3. DORNASE ALFA. [Concomitant]
     Active Substance: DORNASE ALFA
  4. LEVEMIR [Concomitant]
     Active Substance: INSULIN DETEMIR
  5. ACETYLCYSTEINE. [Concomitant]
     Active Substance: ACETYLCYSTEINE
  6. AZTREONAM. [Concomitant]
     Active Substance: AZTREONAM
  7. URSODEOXYCHOLIC ACID [Concomitant]
     Active Substance: URSODIOL
  8. OMEPRAZOLE. [Concomitant]
     Active Substance: OMEPRAZOLE
  9. CREON [Concomitant]
     Active Substance: PANCRELIPASE AMYLASE\PANCRELIPASE LIPASE\PANCRELIPASE PROTEASE
  10. TOBRAMYCIN. [Concomitant]
     Active Substance: TOBRAMYCIN
  11. HUMALOG [Concomitant]
     Active Substance: INSULIN LISPRO
  12. SALBUTAMOL [Concomitant]
     Active Substance: ALBUTEROL
  13. VITAMIN K [Concomitant]
     Active Substance: PHYTONADIONE

REACTIONS (2)
  - Dysphagia [Unknown]
  - Oesophageal carcinoma [Unknown]

NARRATIVE: CASE EVENT DATE: 20210101
